FAERS Safety Report 10229409 (Version 3)
Quarter: 2014Q2

REPORT INFORMATION
  Report Type: Spontaneous
  Country: CN (occurrence: CN)
  Receive Date: 20140611
  Receipt Date: 20140627
  Transmission Date: 20141212
  Serious: Yes (Hospitalization)
  Sender: FDA-Public Use
  Company Number: CN-ROCHE-1416989

PATIENT
  Age: 64 Year
  Sex: Male

DRUGS (5)
  1. HERCEPTIN [Suspect]
     Indication: GASTRIC CANCER
     Dosage: INITIAL DOSAGE
     Route: 041
     Dates: start: 20140429, end: 20140429
  2. HERCEPTIN [Suspect]
     Route: 041
     Dates: start: 20140520, end: 20140610
  3. CAPECITABINE [Suspect]
     Indication: GASTRIC CANCER
     Route: 065
     Dates: start: 20130524, end: 20131105
  4. PACLITAXEL [Concomitant]
     Indication: GASTRIC CANCER
     Route: 065
     Dates: start: 20140429, end: 20140520
  5. GIMERACIL/OTERACIL POTASSIUM [Concomitant]
     Route: 065
     Dates: start: 20140429, end: 20140520

REACTIONS (1)
  - Interstitial lung disease [Recovering/Resolving]
